FAERS Safety Report 7153762-7 (Version None)
Quarter: 2010Q4

REPORT INFORMATION
  Report Type: 
  Country: None (occurrence: None)
  Receive Date: 20101213
  Receipt Date: 20101026
  Transmission Date: 20110411
  Serious: No
  Sender: FDA-Public Use
  Company Number: US-ABBOTT-10P-163-0681416-00

PATIENT
  Sex: Female
  Weight: 127.12 kg

DRUGS (2)
  1. MERIDIA [Suspect]
     Indication: WEIGHT DECREASED
     Route: 048
     Dates: start: 20100609
  2. PAIN MEDICATION [Concomitant]
     Indication: ARTHRALGIA

REACTIONS (10)
  - BLOOD PRESSURE INCREASED [None]
  - DIZZINESS [None]
  - EYE PAIN [None]
  - HYPOAESTHESIA [None]
  - LACRIMATION INCREASED [None]
  - MALAISE [None]
  - MIGRAINE [None]
  - NAUSEA [None]
  - PAIN IN EXTREMITY [None]
  - URINARY TRACT INFECTION [None]
